FAERS Safety Report 12909138 (Version 1)
Quarter: 2016Q4

REPORT INFORMATION
  Report Type: Spontaneous
  Country: US (occurrence: US)
  Receive Date: 20161103
  Receipt Date: 20161103
  Transmission Date: 20170207
  Serious: No
  Sender: FDA-Public Use
  Company Number: US-JAZZ-2016-US-017042

PATIENT
  Age: 53 Year
  Sex: Female

DRUGS (25)
  1. VITAMIN C [Concomitant]
     Active Substance: ASCORBIC ACID
  2. ATROVENT [Concomitant]
     Active Substance: IPRATROPIUM BROMIDE
  3. NAPROXEN. [Concomitant]
     Active Substance: NAPROXEN
  4. XANAX [Concomitant]
     Active Substance: ALPRAZOLAM
  5. VITAMIN E [Concomitant]
     Active Substance: .ALPHA.-TOCOPHEROL
  6. PROVENTIL [Concomitant]
     Active Substance: ALBUTEROL
  7. XYZAL [Concomitant]
     Active Substance: LEVOCETIRIZINE DIHYDROCHLORIDE
  8. IODINE. [Concomitant]
     Active Substance: IODINE
  9. LUNESTA [Concomitant]
     Active Substance: ESZOPICLONE
  10. ARMOUR THYROID [Concomitant]
     Active Substance: THYROID, PORCINE
  11. FIORICET [Concomitant]
     Active Substance: ACETAMINOPHEN\BUTALBITAL\CAFFEINE
  12. DIPHENHYDRAMINE. [Concomitant]
     Active Substance: DIPHENHYDRAMINE
  13. MEPERIDINE HCL [Concomitant]
     Active Substance: MEPERIDINE HYDROCHLORIDE
  14. ASPIRIN. [Concomitant]
     Active Substance: ASPIRIN
  15. NUVIGIL [Concomitant]
     Active Substance: ARMODAFINIL
  16. METAXALONE. [Concomitant]
     Active Substance: METAXALONE
  17. COLACE [Concomitant]
     Active Substance: DOCUSATE SODIUM
  18. THYROSOL [Concomitant]
  19. ESTROGEN/METHYLTES [Concomitant]
     Active Substance: ESTROGENS\METHYLTESTOSTERONE
  20. VITAMIN D3 [Concomitant]
     Active Substance: CHOLECALCIFEROL
  21. SINGULAIR [Concomitant]
     Active Substance: MONTELUKAST SODIUM
  22. XYREM [Suspect]
     Active Substance: SODIUM OXYBATE
     Indication: INSOMNIA
     Dosage: 2.25 G, BID
     Route: 048
     Dates: start: 20160901
  23. IRON [Concomitant]
     Active Substance: IRON
  24. MAGNESIUM [Concomitant]
     Active Substance: MAGNESIUM
  25. CYMBALTA [Concomitant]
     Active Substance: DULOXETINE HYDROCHLORIDE

REACTIONS (6)
  - Malaise [Unknown]
  - Head discomfort [Unknown]
  - Ear disorder [Unknown]
  - Pain in extremity [Unknown]
  - Unevaluable event [Unknown]
  - Paraesthesia [Unknown]

NARRATIVE: CASE EVENT DATE: 201609
